FAERS Safety Report 12204182 (Version 2)
Quarter: 2016Q3

REPORT INFORMATION
  Report Type: Spontaneous
  Country: HK (occurrence: HK)
  Receive Date: 20160323
  Receipt Date: 20160829
  Transmission Date: 20161109
  Serious: Yes (Hospitalization)
  Sender: FDA-Public Use
  Company Number: HK-BAYER-2016-050854

PATIENT
  Age: 47 Year
  Sex: Female

DRUGS (1)
  1. GADOVIST [Suspect]
     Active Substance: GADOBUTROL
     Dosage: 7.5 ML, ONCE
     Dates: start: 20160311, end: 20160311

REACTIONS (6)
  - Nasal oedema [None]
  - Eye swelling [None]
  - Limb discomfort [None]
  - Headache [None]
  - Feeling hot [None]
  - Blood pressure decreased [None]

NARRATIVE: CASE EVENT DATE: 20160311
